FAERS Safety Report 9983987 (Version 2)
Quarter: 2014Q1

REPORT INFORMATION
  Report Type: Report from Study
  Country: US (occurrence: US)
  Receive Date: 20140307
  Receipt Date: 20140307
  Transmission Date: 20141002
  Serious: No
  Sender: FDA-Public Use
  Company Number: US-ABBVIE-13P-163-1148307-00

PATIENT
  Age: 31 Year
  Sex: Female
  Weight: 50.39 kg

DRUGS (7)
  1. HUMIRA [Suspect]
     Indication: RHEUMATOID ARTHRITIS
     Route: 058
     Dates: start: 20130908
  2. HUMIRA [Suspect]
     Indication: PSORIATIC ARTHROPATHY
  3. HYDROCODONE [Concomitant]
     Indication: ARTHRALGIA
  4. LEFLUNOMIDE [Concomitant]
     Indication: RHEUMATOID ARTHRITIS
  5. MEDROL [Concomitant]
     Indication: RHEUMATOID ARTHRITIS
  6. CELEBREX [Concomitant]
     Indication: PAIN
  7. UNKNOWN ALLERGY MEDICATION [Concomitant]
     Indication: HYPERSENSITIVITY

REACTIONS (5)
  - Fatigue [Recovered/Resolved]
  - Dehydration [Recovered/Resolved]
  - Abdominal pain [Recovered/Resolved]
  - Muscle spasms [Recovered/Resolved]
  - Myalgia [Recovered/Resolved]
